FAERS Safety Report 24833176 (Version 2)
Quarter: 2025Q1

REPORT INFORMATION
  Report Type: Report from Study
  Country: CN (occurrence: CN)
  Receive Date: 20250111
  Receipt Date: 20250124
  Transmission Date: 20250408
  Serious: Yes (Hospitalization)
  Sender: ABBVIE
  Company Number: CN-TAKEDA-2025TUS002367

PATIENT
  Age: 34 Year
  Sex: Female
  Weight: 57 kg

DRUGS (2)
  1. LEUPROLIDE ACETATE [Suspect]
     Active Substance: LEUPROLIDE ACETATE
     Indication: Breast cancer female
     Dosage: 11.25 MILLIGRAM, Q12H
     Route: 058
     Dates: start: 20241213
  2. TAMOXIFEN CITRATE [Suspect]
     Active Substance: TAMOXIFEN CITRATE
     Indication: Breast cancer female
     Dosage: 10 MILLIGRAM, BID
     Route: 048
     Dates: start: 20241213

REACTIONS (1)
  - Uterine adhesions [Recovered/Resolved]

NARRATIVE: CASE EVENT DATE: 20241222
